FAERS Safety Report 8780649 (Version 1)
Quarter: 2012Q4

REPORT INFORMATION
  Report Type: 
  Country: DE (occurrence: DE)
  Receive Date: 20120913
  Receipt Date: 20120913
  Transmission Date: 20130627
  Serious: Yes (Hospitalization)
  Sender: FDA-Public Use
  Company Number: DE-ELI_LILLY_AND_COMPANY-DE201209001138

PATIENT
  Age: 55 Year
  Sex: Female
  Weight: 90.1 kg

DRUGS (1)
  1. PEMETREXED [Suspect]
     Indication: NON-SMALL CELL LUNG CANCER
     Dosage: 500 mg/m2, UNK
     Dates: start: 20120209, end: 20120229

REACTIONS (6)
  - Hypoproteinaemia [Unknown]
  - Mucosal inflammation [Unknown]
  - Neutropenia [Unknown]
  - Streptococcal sepsis [Unknown]
  - Candida sepsis [Unknown]
  - Toxicity to various agents [Unknown]
